FAERS Safety Report 12888723 (Version 1)
Quarter: 2016Q4

REPORT INFORMATION
  Report Type: Report from Study
  Country: IN (occurrence: IN)
  Receive Date: 20161027
  Receipt Date: 20161027
  Transmission Date: 20170207
  Serious: Yes (Death)
  Sender: FDA-Public Use
  Company Number: PHHY2014IN032920

PATIENT
  Age: 65 Year
  Sex: Female

DRUGS (8)
  1. WYSOLONE [Concomitant]
     Active Substance: PREDNISOLONE
     Indication: STEROID THERAPY
     Dosage: 30 MG, 20 MG IN DAY AND 10 MG IN NIGHT
     Route: 065
  2. CITROMACALVIT [Concomitant]
     Active Substance: CALCITRIOL\CALCIUM CITRATE
     Indication: MINERAL SUPPLEMENTATION
     Dosage: UKN, QD
     Route: 048
  3. ACLASTA [Suspect]
     Active Substance: ZOLEDRONIC ACID
     Indication: OSTEOPOROSIS
     Dosage: 1 DF, Q12MO
     Route: 042
  4. ACLASTA [Suspect]
     Active Substance: ZOLEDRONIC ACID
     Dosage: 1 DF, Q12MO
     Route: 042
     Dates: start: 20111104
  5. AMARYL [Concomitant]
     Active Substance: GLIMEPIRIDE
     Indication: DIABETES MELLITUS
     Dosage: QD
     Route: 048
  6. ACLASTA [Suspect]
     Active Substance: ZOLEDRONIC ACID
     Dosage: 1 DF, Q12MO
     Route: 042
     Dates: start: 20121204
  7. NEOMERCAZOLE [Concomitant]
     Active Substance: CARBIMAZOLE
     Indication: THYROID DISORDER
     Dosage: UNK
     Route: 065
  8. RAZO D [Concomitant]
     Indication: GASTRIC DISORDER
     Route: 065

REACTIONS (3)
  - Cough [Not Recovered/Not Resolved]
  - Dyspnoea [Not Recovered/Not Resolved]
  - Death [Fatal]

NARRATIVE: CASE EVENT DATE: 20160629
